FAERS Safety Report 25071643 (Version 1)
Quarter: 2025Q1

REPORT INFORMATION
  Report Type: Spontaneous
  Country: AT (occurrence: AT)
  Receive Date: 20250313
  Receipt Date: 20250313
  Transmission Date: 20250409
  Serious: Yes (Other)
  Sender: AMGEN
  Company Number: AT-AMGEN-AUTSP2025044880

PATIENT
  Age: 84 Year
  Sex: Female

DRUGS (16)
  1. NPLATE [Suspect]
     Active Substance: ROMIPLOSTIM
     Indication: Immune thrombocytopenia
     Dosage: 50 MICROGRAM, QWK
     Route: 065
     Dates: start: 20211214
  2. NPLATE [Suspect]
     Active Substance: ROMIPLOSTIM
     Dosage: UNK UNK, QWK
     Route: 065
     Dates: start: 202206
  3. NPLATE [Suspect]
     Active Substance: ROMIPLOSTIM
     Dosage: 50 MICROGRAM, Q2WK
     Route: 065
     Dates: start: 202301
  4. NPLATE [Suspect]
     Active Substance: ROMIPLOSTIM
     Dosage: 50 MICROGRAM, Q3WK
     Route: 065
     Dates: start: 202305
  5. NPLATE [Suspect]
     Active Substance: ROMIPLOSTIM
     Dosage: 50 MICROGRAM, Q2WK
     Route: 065
     Dates: start: 202307
  6. NPLATE [Suspect]
     Active Substance: ROMIPLOSTIM
     Dosage: 80 MICROGRAM, Q2WK
     Route: 065
     Dates: start: 202310
  7. NPLATE [Suspect]
     Active Substance: ROMIPLOSTIM
     Dosage: 100 MICROGRAM, Q2WK
     Route: 065
     Dates: start: 202402
  8. NPLATE [Suspect]
     Active Substance: ROMIPLOSTIM
     Dosage: 120 MICROGRAM, Q2WK
     Route: 065
     Dates: start: 202403
  9. NPLATE [Suspect]
     Active Substance: ROMIPLOSTIM
     Dosage: 200 MICROGRAM, Q2WK
     Route: 065
     Dates: start: 202406
  10. RITUXIMAB [Concomitant]
     Active Substance: RITUXIMAB
     Indication: Immune thrombocytopenia
     Route: 065
     Dates: start: 20211209
  11. RITUXIMAB [Concomitant]
     Active Substance: RITUXIMAB
     Route: 065
     Dates: start: 20211215
  12. RITUXIMAB [Concomitant]
     Active Substance: RITUXIMAB
     Route: 065
     Dates: start: 20211222
  13. RITUXIMAB [Concomitant]
     Active Substance: RITUXIMAB
     Route: 065
     Dates: start: 20211229
  14. PREDNISOLONE [Concomitant]
     Active Substance: PREDNISOLONE
     Dates: start: 20211209, end: 20211217
  15. HUMAN IMMUNOGLOBULIN G [Concomitant]
     Active Substance: HUMAN IMMUNOGLOBULIN G
     Route: 040
     Dates: start: 20211211, end: 20211214
  16. METHIMAZOLE [Concomitant]
     Active Substance: METHIMAZOLE
     Indication: Hyperthyroidism
     Dates: start: 2011

REACTIONS (3)
  - Chronic myelomonocytic leukaemia [Recovering/Resolving]
  - Off label use [Unknown]
  - Inappropriate schedule of product administration [Unknown]

NARRATIVE: CASE EVENT DATE: 20230101
